FAERS Safety Report 19890345 (Version 2)
Quarter: 2021Q4

REPORT INFORMATION
  Report Type: Spontaneous
  Country: US (occurrence: US)
  Receive Date: 20210928
  Receipt Date: 20211004
  Transmission Date: 20220303
  Serious: No
  Sender: FDA-Public Use
  Company Number: 2021A725196

PATIENT
  Age: 947 Month
  Sex: Female
  Weight: 62.1 kg

DRUGS (3)
  1. BUDESONIDE\FORMOTEROL\GLYCOPYRRONIUM [Suspect]
     Active Substance: BUDESONIDE\FORMOTEROL\GLYCOPYRRONIUM
     Indication: Chronic obstructive pulmonary disease
     Dosage: 160/9/4.8 MCGS TWO PUFFS TWICE DAILY
     Route: 055
     Dates: start: 2021
  2. SYMBICORT [Suspect]
     Active Substance: BUDESONIDE\FORMOTEROL FUMARATE DIHYDRATE
     Indication: Chronic obstructive pulmonary disease
     Dosage: 160/4.5 MCGS TWO PUFF TWICE DAILY
     Route: 055
     Dates: start: 2011
  3. OXYGEN [Concomitant]
     Active Substance: OXYGEN

REACTIONS (4)
  - COVID-19 [Unknown]
  - Chronic obstructive pulmonary disease [Not Recovered/Not Resolved]
  - Drug dose omission by device [Unknown]
  - Device issue [Not Recovered/Not Resolved]

NARRATIVE: CASE EVENT DATE: 20201201
